FAERS Safety Report 7341846-X (Version None)
Quarter: 2011Q1

REPORT INFORMATION
  Report Type: 
  Country: None (occurrence: None)
  Receive Date: 20110309
  Receipt Date: 20110225
  Transmission Date: 20110831
  Serious: Yes (Other)
  Sender: FDA-Public Use
  Company Number: US-ELI_LILLY_AND_COMPANY-US201102007566

PATIENT
  Age: 62 Year
  Sex: Female

DRUGS (5)
  1. SYNTHROID [Concomitant]
  2. LIALDA [Concomitant]
  3. CYMBALTA [Suspect]
     Dosage: UNK, UNKNOWN
  4. LYRICA [Concomitant]
  5. CYMBALTA [Suspect]
     Indication: MAJOR DEPRESSION
     Dosage: 20 MG, UNKNOWN

REACTIONS (1)
  - HEPATITIS [None]
